FAERS Safety Report 18386680 (Version 1)
Quarter: 2020Q4

REPORT INFORMATION
  Report Type: Spontaneous
  Country: GB (occurrence: GB)
  Receive Date: 20201015
  Receipt Date: 20201015
  Transmission Date: 20210114
  Serious: Yes (Other)
  Sender: FDA-Public Use
  Company Number: GB-TEVA-2020-GB-1839474

PATIENT
  Age: 15 Year
  Sex: Male

DRUGS (5)
  1. LOMUSITINE [Concomitant]
     Indication: MEDULLOBLASTOMA
     Dosage: ON DAY-1 IN CYCLE 1
     Route: 065
  2. CYCLOPHOSPHAMIDE. [Concomitant]
     Active Substance: CYCLOPHOSPHAMIDE
     Indication: MEDULLOBLASTOMA
     Dosage: IN WEEK 7
     Route: 065
  3. CISPLATIN. [Suspect]
     Active Substance: CISPLATIN
     Indication: MEDULLOBLASTOMA
     Dosage: ON DAY-1 IN CYCLE 1
     Route: 065
  4. VINCRISTINE [Concomitant]
     Active Substance: VINCRISTINE
     Indication: MEDULLOBLASTOMA
     Dosage: ON DAY-1 IN CYCLE 1 IN WEEK 1
     Route: 065
  5. VINCRISTINE [Concomitant]
     Active Substance: VINCRISTINE
     Dosage: 2 DOSES 1 WEEK APART IN WEEKS 2 AND 3
     Route: 065

REACTIONS (1)
  - Cystitis haemorrhagic [Recovered/Resolved]
